FAERS Safety Report 12074360 (Version 2)
Quarter: 2016Q2

REPORT INFORMATION
  Report Type: Report from Study
  Country: DE (occurrence: DE)
  Receive Date: 20160212
  Receipt Date: 20160627
  Transmission Date: 20160815
  Serious: Yes (Other)
  Sender: FDA-Public Use
  Company Number: DE-ABBVIE-16P-062-1556833-00

PATIENT
  Age: 49 Year
  Sex: Male
  Weight: 67 kg

DRUGS (9)
  1. ISENTRESS [Concomitant]
     Active Substance: RALTEGRAVIR POTASSIUM
     Indication: HIV INFECTION
     Route: 048
     Dates: start: 20111223
  2. LEVOTHYROXINE. [Concomitant]
     Active Substance: LEVOTHYROXINE
     Indication: HYPOTHYROIDISM
     Route: 048
     Dates: start: 20120926
  3. DEKRISTOL [Concomitant]
     Active Substance: CHOLECALCIFEROL
     Indication: PRODUCT USED FOR UNKNOWN INDICATION
  4. TANTUM VERDE [Concomitant]
     Active Substance: BENZYDAMINE HYDROCHLORIDE
     Indication: PRODUCT USED FOR UNKNOWN INDICATION
     Dates: start: 20151207, end: 20151212
  5. IBU [Concomitant]
     Active Substance: IBUPROFEN
     Indication: PRODUCT USED FOR UNKNOWN INDICATION
     Dates: start: 20151207, end: 20151212
  6. TRUVADA [Concomitant]
     Active Substance: EMTRICITABINE\TENOFOVIR DISOPROXIL FUMARATE
     Indication: HIV INFECTION
     Dosage: DOSE TEXT: 200/245MG
     Route: 048
     Dates: start: 20111223
  7. NAC AKUT [Concomitant]
     Indication: PRODUCT USED FOR UNKNOWN INDICATION
     Dates: start: 20151207, end: 20151217
  8. MUCOFALK [Concomitant]
     Indication: PRODUCT USED FOR UNKNOWN INDICATION
  9. KALETRA [Suspect]
     Active Substance: LOPINAVIR\RITONAVIR
     Indication: HIV INFECTION
     Route: 048
     Dates: start: 20111223

REACTIONS (3)
  - Thyroid cyst [Not Recovered/Not Resolved]
  - Pneumonia [Recovering/Resolving]
  - Hepatitis C [Recovered/Resolved]

NARRATIVE: CASE EVENT DATE: 20151210
